FAERS Safety Report 4321069-9 (Version None)
Quarter: 2004Q1

REPORT INFORMATION
  Report Type: 
  Country: None (occurrence: None)
  Receive Date: 20040318
  Receipt Date: 20040303
  Transmission Date: 20041129
  Serious: Yes (Hospitalization)
  Sender: FDA-Public Use
  Company Number: UK068341

PATIENT
  Age: 79 Year
  Sex: Male

DRUGS (7)
  1. GRANULOKINE [Suspect]
     Indication: DRUG USE FOR UNKNOWN INDICATION
     Dosage: 30 MCG, 1 IN 1 DAYS, SC
     Route: 058
     Dates: start: 20040218, end: 20040220
  2. FUROSEMIDE [Concomitant]
  3. GLYCERYL TRINITRATE [Concomitant]
  4. DOPAMINE HYDROCHLORIDE [Concomitant]
  5. ALBUMIN (HUMAN) [Concomitant]
  6. CEFTAZIDIME [Concomitant]
  7. SODIUM BICARBONATE [Concomitant]

REACTIONS (1)
  - LEUKOCYTOSIS [None]
